FAERS Safety Report 10035818 (Version 1)
Quarter: 2014Q1

REPORT INFORMATION
  Report Type: Spontaneous
  Country: US (occurrence: None)
  Receive Date: 20140306
  Receipt Date: 20140306
  Transmission Date: 20141002
  Serious: Yes (Other)
  Sender: FDA-Public Use
  Company Number: 163-21880-12123414

PATIENT
  Age: 64 Year
  Sex: Male
  Weight: 102.06 kg

DRUGS (10)
  1. REVLIMID [Suspect]
     Indication: PLASMA CELL MYELOMA
     Route: 048
     Dates: start: 201101
  2. AMLODIPINE (AMLODIPINE) [Concomitant]
  3. BENICAR (OLMESARTAN MEDOXOMIL) (TABLETS) [Concomitant]
  4. PRILOSEC (OMEPRAZOLE) [Concomitant]
  5. DEXAMETHASONE (DEXAMETHASONE) [Concomitant]
  6. CALCIUM CITRATE (CALCIUM CITRATE) [Concomitant]
  7. CHONDROITIN SULFATE [Concomitant]
  8. ESSENTIAL MAN 50+ (MULTIPLE VITAMINS) [Concomitant]
  9. TRAZODONE HCL (TRAZODONE HYDROCHLORIDE) [Concomitant]
  10. WARFARIN SODIUM (WARFARIN SODIUM) [Concomitant]

REACTIONS (3)
  - Cataract [None]
  - Weight increased [None]
  - Local swelling [None]
